FAERS Safety Report 10203257 (Version 4)
Quarter: 2015Q1

REPORT INFORMATION
  Report Type: Report from Study
  Country: US (occurrence: US)
  Receive Date: 20140529
  Receipt Date: 20150106
  Transmission Date: 20150720
  Serious: Yes (Hospitalization, Other)
  Sender: FDA-Public Use
  Company Number: US-ALEXION-A201402027

PATIENT

DRUGS (1)
  1. SOLIRIS [Suspect]
     Active Substance: ECULIZUMAB
     Indication: HAEMOLYTIC URAEMIC SYNDROME
     Dosage: 1200 MG, Q2W
     Route: 042
     Dates: start: 20140407, end: 20140516

REACTIONS (6)
  - Liver injury [Unknown]
  - Asthenia [Unknown]
  - Acute kidney injury [Unknown]
  - Malnutrition [Unknown]
  - Immunodeficiency [Unknown]
  - Burkholderia cepacia complex infection [Unknown]

NARRATIVE: CASE EVENT DATE: 20140519
